FAERS Safety Report 6615863-9 (Version None)
Quarter: 2010Q1

REPORT INFORMATION
  Report Type: 
  Country: None (occurrence: None)
  Receive Date: 20100305
  Receipt Date: 20100223
  Transmission Date: 20100710
  Serious: Yes (Death)
  Sender: FDA-Public Use
  Company Number: CA-JNJFOC-20060502265

PATIENT
  Sex: Male

DRUGS (2)
  1. TYLENOL W/ CODEINE NO. 3 [Suspect]
     Indication: DRUG EXPOSURE VIA BREAST MILK
     Dosage: REDUCED TO HALF THAT DOSE FROM DAY 2, CONTINUED FOR 2 WEEKS
     Route: 063
  2. TYLENOL W/ CODEINE NO. 3 [Suspect]
     Route: 063

REACTIONS (2)
  - DRUG EXPOSURE VIA BREAST MILK [None]
  - DRUG TOXICITY [None]
